FAERS Safety Report 4482091-5 (Version None)
Quarter: 2004Q4

REPORT INFORMATION
  Report Type: 
  Country: None (occurrence: None)
  Receive Date: 20041020
  Receipt Date: 20041005
  Transmission Date: 20050328
  Serious: Yes (Other)
  Sender: FDA-Public Use
  Company Number: EWC040940671

PATIENT
  Age: 62 Year
  Sex: Female

DRUGS (3)
  1. EVISTA [Suspect]
     Indication: OSTEOPOROSIS
     Dosage: 60 MG
     Dates: start: 20040704, end: 20040805
  2. NIFEDEX (NIFEDIPINE) [Concomitant]
  3. NEUROFORTE [Concomitant]

REACTIONS (2)
  - DIARRHOEA [None]
  - DIZZINESS [None]
